FAERS Safety Report 16643533 (Version 1)
Quarter: 2019Q3

REPORT INFORMATION
  Report Type: Spontaneous
  Country: US (occurrence: US)
  Receive Date: 20190729
  Receipt Date: 20190729
  Transmission Date: 20191004
  Serious: No
  Sender: FDA-Public Use
  Company Number: US-PRINSTON PHARMACEUTICAL INC.-2019PRN00489

PATIENT
  Sex: Male

DRUGS (2)
  1. CLONAZEPAM. [Suspect]
     Active Substance: CLONAZEPAM
     Indication: ANXIETY DISORDER
  2. CLONAZEPAM. [Suspect]
     Active Substance: CLONAZEPAM
     Indication: PANIC ATTACK

REACTIONS (3)
  - Withdrawal syndrome [Unknown]
  - Abdominal discomfort [Not Recovered/Not Resolved]
  - Drug ineffective [Not Recovered/Not Resolved]
